FAERS Safety Report 14881928 (Version 4)
Quarter: 2023Q1

REPORT INFORMATION
  Report Type: Report from Study
  Country: US (occurrence: US)
  Receive Date: 20180511
  Receipt Date: 20230109
  Transmission Date: 20230417
  Serious: Yes (Hospitalization, Other)
  Sender: FDA-Public Use
  Company Number: US-JAZZ-2018-US-007045

PATIENT
  Age: 44 Year
  Sex: Female

DRUGS (19)
  1. XYREM [Suspect]
     Active Substance: SODIUM OXYBATE
     Indication: Narcolepsy
     Dosage: 2.25 GRAM, BID
     Route: 048
     Dates: start: 201106, end: 201107
  2. XYREM [Suspect]
     Active Substance: SODIUM OXYBATE
     Dosage: DOSE ADJUSTMENT
     Route: 048
     Dates: start: 201107, end: 201202
  3. XYREM [Suspect]
     Active Substance: SODIUM OXYBATE
     Dosage: 4.5 GRAM, BID
     Route: 048
     Dates: start: 201203, end: 201709
  4. ENBREL [Concomitant]
     Active Substance: ETANERCEPT
     Indication: Rheumatoid arthritis
     Dosage: 50 MILLIGRAM PER MILLILITRE
     Route: 058
     Dates: start: 20170117
  5. MEFENAMIC ACID [Concomitant]
     Active Substance: MEFENAMIC ACID
  6. PSEUDOEPHEDRINE [Concomitant]
     Active Substance: PSEUDOEPHEDRINE
  7. PRISTIQ EXTENDED-RELEASE [Concomitant]
     Active Substance: DESVENLAFAXINE SUCCINATE
  8. ALEVE [Concomitant]
     Active Substance: NAPROXEN SODIUM
  9. AMBIEN CR [Concomitant]
     Active Substance: ZOLPIDEM TARTRATE
  10. ASPIRIN [Concomitant]
     Active Substance: ASPIRIN
  11. DIPHENHYDRAMINE HYDROCHLORIDE [Concomitant]
     Active Substance: DIPHENHYDRAMINE HYDROCHLORIDE
  12. HUMIRA [Concomitant]
     Active Substance: ADALIMUMAB
  13. MELOXICAM [Concomitant]
     Active Substance: MELOXICAM
  14. METHOTREXATE [Concomitant]
     Active Substance: METHOTREXATE
  15. NUVIGIL [Concomitant]
     Active Substance: ARMODAFINIL
  16. SULFASALAZINE [Concomitant]
     Active Substance: SULFASALAZINE
  17. TYLENOL ARTHRITIS PAIN [Concomitant]
     Active Substance: ACETAMINOPHEN
  18. VYVANSE [Concomitant]
     Active Substance: LISDEXAMFETAMINE DIMESYLATE
  19. WELLBUTRIN [Concomitant]
     Active Substance: BUPROPION HYDROCHLORIDE

REACTIONS (3)
  - Pre-eclampsia [Recovered/Resolved]
  - Feeling abnormal [Recovered/Resolved]
  - Exposure during pregnancy [Unknown]

NARRATIVE: CASE EVENT DATE: 20170601
